FAERS Safety Report 6484503-4 (Version None)
Quarter: 2009Q4

REPORT INFORMATION
  Report Type: 
  Country: None (occurrence: None)
  Receive Date: 20091209
  Receipt Date: 20091201
  Transmission Date: 20100525
  Serious: Yes (Hospitalization)
  Sender: FDA-Public Use
  Company Number: PHHO2009FR12045

PATIENT
  Sex: Female
  Weight: 70 kg

DRUGS (5)
  1. CGS 20267 T30748+TAB [Suspect]
     Indication: BREAST CANCER
     Dosage: 2.5 MG, QD
     Route: 048
     Dates: start: 20090220
  2. LEVOTHYROXINE SODIUM [Concomitant]
     Indication: HYPOTHYROIDISM
     Dosage: UNK
  3. STILNOX [Concomitant]
     Indication: SLEEP DISORDER
     Dosage: UNK
  4. ISOPTIN [Concomitant]
     Indication: PROPHYLAXIS
  5. MOPRAL [Concomitant]
     Indication: PROPHYLAXIS

REACTIONS (7)
  - ARTERIOSPASM CORONARY [None]
  - BUNDLE BRANCH BLOCK RIGHT [None]
  - CHEST DISCOMFORT [None]
  - CHEST PAIN [None]
  - ELECTROCARDIOGRAM ST SEGMENT DEPRESSION [None]
  - HYPOKALAEMIA [None]
  - PRINZMETAL ANGINA [None]
